FAERS Safety Report 24142454 (Version 2)
Quarter: 2024Q3

REPORT INFORMATION
  Report Type: Other
  Country: AU (occurrence: AU)
  Receive Date: 20240726
  Receipt Date: 20240826
  Transmission Date: 20241017
  Serious: No
  Sender: TOLMAR
  Company Number: AU-TOLMAR, INC.-24AU050774

PATIENT
  Sex: Male

DRUGS (3)
  1. ELIGARD [Suspect]
     Active Substance: LEUPROLIDE ACETATE
     Indication: Prostate cancer
     Dosage: 7.5 MILLIGRAM, Q 1 MONTH
  2. ELIGARD [Suspect]
     Active Substance: LEUPROLIDE ACETATE
     Indication: Prostate cancer
     Dosage: UNK
  3. BLACK COHOSH [Suspect]
     Active Substance: BLACK COHOSH
     Indication: Product used for unknown indication
     Dosage: UNK

REACTIONS (1)
  - Hot flush [Not Recovered/Not Resolved]
